FAERS Safety Report 13401499 (Version 1)
Quarter: 2017Q2

REPORT INFORMATION
  Report Type: Spontaneous
  Country: JP (occurrence: JP)
  Receive Date: 20170404
  Receipt Date: 20170404
  Transmission Date: 20170830
  Serious: Yes (Other)
  Sender: FDA-Public Use
  Company Number: JP-PFIZER INC-2017137371

PATIENT
  Age: 68 Year
  Sex: Male

DRUGS (2)
  1. CABASER [Suspect]
     Active Substance: CABERGOLINE
     Indication: PARKINSON^S DISEASE
     Dosage: 3 MG, 1X/DAY
     Route: 048
  2. CARCOPA [Concomitant]
     Active Substance: CARBIDOPA\LEVODOPA
     Dosage: UNK

REACTIONS (3)
  - Drug effect incomplete [Unknown]
  - Hallucination [Unknown]
  - Depressed level of consciousness [Unknown]
